FAERS Safety Report 12978487 (Version 3)
Quarter: 2017Q1

REPORT INFORMATION
  Report Type: Report from Study
  Country: US (occurrence: US)
  Receive Date: 20161128
  Receipt Date: 20170125
  Transmission Date: 20170428
  Serious: Yes (Death, Hospitalization)
  Sender: FDA-Public Use
  Company Number: US-JNJFOC-20161012186

PATIENT
  Age: 75 Year
  Sex: Female
  Weight: 77.1 kg

DRUGS (14)
  1. AMLODIPINE [Concomitant]
     Active Substance: AMLODIPINE BESYLATE
     Route: 065
     Dates: start: 20140301, end: 20160210
  2. LORAZEPAM. [Concomitant]
     Active Substance: LORAZEPAM
     Route: 065
     Dates: start: 20151215
  3. NEULASTA [Concomitant]
     Active Substance: PEGFILGRASTIM
     Indication: NEUTROPENIA
     Route: 065
     Dates: start: 20160203, end: 20160204
  4. OLARATUMAB [Suspect]
     Active Substance: OLARATUMAB
     Indication: SOFT TISSUE SARCOMA
     Route: 065
     Dates: start: 20160203, end: 20160203
  5. HYDROMORPHONE [Concomitant]
     Active Substance: HYDROMORPHONE
     Route: 065
     Dates: start: 20140301
  6. OMEPRAZOLE. [Concomitant]
     Active Substance: OMEPRAZOLE
     Route: 065
     Dates: start: 20160208
  7. DOXIL [Suspect]
     Active Substance: DOXORUBICIN HYDROCHLORIDE
     Indication: SOFT TISSUE SARCOMA
     Dosage: ON DAY 1
     Route: 042
     Dates: start: 20160107, end: 20160203
  8. DEXRAZOXANE. [Suspect]
     Active Substance: DEXRAZOXANE
     Indication: PROPHYLAXIS
     Dosage: ADMINISTERED AS FIRST AND LAST DOSE
     Route: 065
     Dates: start: 20160203, end: 20160203
  9. DEXAMETHASONE. [Concomitant]
     Active Substance: DEXAMETHASONE
     Route: 065
     Dates: start: 20160203, end: 20160206
  10. OLARATUMAB [Suspect]
     Active Substance: OLARATUMAB
     Indication: SOFT TISSUE SARCOMA
     Dosage: STOP DATE 03-FEB-2016 AND CONFLICTINGLY REPORTED AS 09-FEB-2016
     Route: 065
     Dates: start: 20160107, end: 20160203
  11. PROMETHAZINE [Concomitant]
     Active Substance: PROMETHAZINE\PROMETHAZINE HYDROCHLORIDE
     Route: 065
     Dates: start: 201403
  12. RIVAROXABAN [Concomitant]
     Active Substance: RIVAROXABAN
     Route: 065
  13. LEVOTHYROXINE. [Concomitant]
     Active Substance: LEVOTHYROXINE
     Route: 065
     Dates: start: 20130101
  14. SIMVASTATIN. [Concomitant]
     Active Substance: SIMVASTATIN
     Route: 065

REACTIONS (12)
  - Platelet count decreased [Recovered/Resolved]
  - Fatigue [Unknown]
  - Disease progression [Unknown]
  - Death [Fatal]
  - Product use issue [Unknown]
  - Febrile neutropenia [Recovered/Resolved]
  - Oropharyngeal plaque [Unknown]
  - Mouth ulceration [Recovering/Resolving]
  - Tachycardia [Unknown]
  - Mucous membrane disorder [Unknown]
  - Off label use [Unknown]
  - Oral pain [Recovering/Resolving]

NARRATIVE: CASE EVENT DATE: 20160107
